FAERS Safety Report 8503316 (Version 2)
Quarter: 2013Q2

REPORT INFORMATION
  Report Type: Spontaneous
  Country: BR (occurrence: BR)
  Receive Date: 20120411
  Receipt Date: 20130412
  Transmission Date: 20140414
  Serious: Yes (Death, Other)
  Sender: FDA-Public Use
  Company Number: PHHY2012BR029952

PATIENT
  Age: 29 Year
  Sex: Female

DRUGS (1)
  1. ONBREZ [Suspect]
     Indication: CHRONIC OBSTRUCTIVE PULMONARY DISEASE
     Dosage: 150 UG, BID
     Dates: start: 201105

REACTIONS (3)
  - Asthmatic crisis [Fatal]
  - Septic shock [Fatal]
  - Inappropriate schedule of drug administration [Unknown]
